FAERS Safety Report 6790519-0 (Version None)
Quarter: 2010Q2

REPORT INFORMATION
  Report Type: 
  Country: None (occurrence: None)
  Receive Date: 20100624
  Receipt Date: 20100617
  Transmission Date: 20101027
  Serious: Yes (Hospitalization)
  Sender: FDA-Public Use
  Company Number: CH-ROCHE-709857

PATIENT
  Sex: Female

DRUGS (2)
  1. BONIVA [Suspect]
     Indication: DRUG USE FOR UNKNOWN INDICATION
     Route: 014
     Dates: start: 20100616, end: 20100616
  2. OSTENIL [Concomitant]
     Route: 014

REACTIONS (6)
  - ARTHRALGIA [None]
  - ERYTHEMA [None]
  - JOINT EFFUSION [None]
  - JOINT SWELLING [None]
  - MEDICATION ERROR [None]
  - PYREXIA [None]
